FAERS Safety Report 6030341-6 (Version None)
Quarter: 2009Q1

REPORT INFORMATION
  Report Type: 
  Country: None (occurrence: None)
  Receive Date: 20090107
  Receipt Date: 20080729
  Transmission Date: 20090719
  Serious: No
  Sender: FDA-Public Use
  Company Number: US-BAYER-200813233BCC

PATIENT
  Age: 77 Year
  Sex: Female
  Weight: 78 kg

DRUGS (9)
  1. ALEVE (CAPLET) [Suspect]
     Indication: ARTHRITIS
     Dosage: TOTAL DAILY DOSE: 220 MG  UNIT DOSE: 220 MG
     Route: 048
  2. FISH OIL [Concomitant]
  3. ASCORBIC ACID [Concomitant]
  4. VITAMIN B6 [Concomitant]
  5. ASPIRIN [Concomitant]
     Route: 048
  6. CENTRUM [Concomitant]
  7. HYDROCHLOROTHIAZIDE [Concomitant]
  8. DOCUSATE SODIUM [Concomitant]
  9. FIBER [Concomitant]

REACTIONS (1)
  - MICTURITION FREQUENCY DECREASED [None]
